FAERS Safety Report 4336435-5 (Version None)
Quarter: 2004Q2

REPORT INFORMATION
  Report Type: 
  Country: None (occurrence: None)
  Receive Date: 20040407
  Receipt Date: 20040329
  Transmission Date: 20050107
  Serious: Yes (Death)
  Sender: FDA-Public Use
  Company Number: 163-20785-04010315

PATIENT
  Age: 55 Year
  Sex: Male

DRUGS (3)
  1. THALOMID [Suspect]
     Indication: METASTASES TO CENTRAL NERVOUS SYSTEM
     Dosage: 200 MG, DAILY, ORAL
     Route: 048
     Dates: start: 20030618, end: 20030901
  2. THALOMID [Suspect]
     Indication: METASTASES TO LUNG
     Dosage: 200 MG, DAILY, ORAL
     Route: 048
     Dates: start: 20030618, end: 20030901
  3. THALOMID [Suspect]
     Indication: METASTATIC RENAL CELL CARCINOMA
     Dosage: 200 MG, DAILY, ORAL
     Route: 048
     Dates: start: 20030618, end: 20030901

REACTIONS (1)
  - DEATH [None]
